FAERS Safety Report 10232728 (Version 1)
Quarter: 2014Q2

REPORT INFORMATION
  Report Type: Spontaneous
  Country: BR (occurrence: BR)
  Receive Date: 20140612
  Receipt Date: 20140612
  Transmission Date: 20141212
  Serious: Yes (Other)
  Sender: FDA-Public Use
  Company Number: BR-ASTRAZENECA-2014SE39952

PATIENT
  Age: 563 Month
  Sex: Female

DRUGS (4)
  1. ATACAND HCT [Suspect]
     Indication: HYPERTENSION
     Dosage: 8/12.5 MG EVERY DAY
     Route: 048
     Dates: start: 2011
  2. PURAN T4 [Concomitant]
     Route: 048
     Dates: start: 2009
  3. VITAMIN B3 [Concomitant]
     Route: 048
     Dates: start: 201404
  4. VITAMIN E [Concomitant]
     Route: 048
     Dates: start: 201404

REACTIONS (2)
  - Blood pressure increased [Unknown]
  - Drug ineffective [Unknown]
